FAERS Safety Report 13612755 (Version 2)
Quarter: 2018Q1

REPORT INFORMATION
  Report Type: Spontaneous
  Country: US (occurrence: US)
  Receive Date: 20170605
  Receipt Date: 20180105
  Transmission Date: 20180508
  Serious: No
  Sender: FDA-Public Use
  Company Number: US-ALLERGAN-1707441US

PATIENT
  Sex: Male

DRUGS (2)
  1. KYBELLA [Suspect]
     Active Substance: DEOXYCHOLIC ACID
     Dosage: 4 CC, SINGLE
     Route: 058
     Dates: start: 20170222, end: 20170222
  2. KYBELLA [Suspect]
     Active Substance: DEOXYCHOLIC ACID
     Indication: FAT TISSUE INCREASED
     Dosage: 4.4 CC,  SINGLE
     Route: 058
     Dates: start: 20161025, end: 20161025

REACTIONS (1)
  - Cranial nerve injury [Recovered/Resolved]

NARRATIVE: CASE EVENT DATE: 2017
